FAERS Safety Report 23074970 (Version 1)
Quarter: 2023Q4

REPORT INFORMATION
  Report Type: Spontaneous
  Country: US (occurrence: None)
  Receive Date: 20231017
  Receipt Date: 20231017
  Transmission Date: 20240109
  Serious: No
  Sender: FDA-Public Use
  Company Number: None

PATIENT
  Sex: Male
  Weight: 68.4 kg

DRUGS (2)
  1. SPRYCEL [Suspect]
     Active Substance: DASATINIB
     Dates: end: 20230614
  2. PREDNISONE [Suspect]
     Active Substance: PREDNISONE
     Dates: end: 20230614

REACTIONS (3)
  - Haemoglobin decreased [None]
  - Platelet count decreased [None]
  - Fatigue [None]

NARRATIVE: CASE EVENT DATE: 20230601
